FAERS Safety Report 7894361-9 (Version None)
Quarter: 2011Q4

REPORT INFORMATION
  Report Type: 
  Country: None (occurrence: None)
  Receive Date: 20111104
  Receipt Date: 20111024
  Transmission Date: 20120403
  Serious: Yes (Other)
  Sender: FDA-Public Use
  Company Number: CA-ROCHE-GNE274406

PATIENT
  Sex: Female
  Weight: 56.06 kg

DRUGS (3)
  1. OMALIZUMAB [Suspect]
     Dosage: 300 MG, 1/MONTH
     Route: 058
     Dates: start: 20100210
  2. SYNTHROID [Concomitant]
     Indication: PRODUCT USED FOR UNKNOWN INDICATION
  3. OMALIZUMAB [Suspect]
     Indication: ASTHMA
     Dosage: 300 MG, 1/MONTH
     Route: 058
     Dates: start: 20070607

REACTIONS (12)
  - HYPERSENSITIVITY [None]
  - LIGAMENT RUPTURE [None]
  - FATIGUE [None]
  - BLOOD PRESSURE DECREASED [None]
  - MUSCULOSKELETAL PAIN [None]
  - TENDONITIS [None]
  - NASAL CONGESTION [None]
  - THYROID CANCER [None]
  - INJECTION SITE REACTION [None]
  - INJECTION SITE ERYTHEMA [None]
  - NECK PAIN [None]
  - THYROIDECTOMY [None]
